FAERS Safety Report 6689486-X (Version None)
Quarter: 2010Q2

REPORT INFORMATION
  Report Type: 
  Country: None (occurrence: None)
  Receive Date: 20100421
  Receipt Date: 20100412
  Transmission Date: 20101027
  Serious: Yes (Other)
  Sender: FDA-Public Use
  Company Number: US-BIOGENIDEC-2010BI011716

PATIENT
  Age: 46 Year
  Sex: Female

DRUGS (7)
  1. TYSABRI [Suspect]
     Indication: MULTIPLE SCLEROSIS
     Route: 042
     Dates: start: 20070212, end: 20070212
  2. TYSABRI [Suspect]
     Route: 042
     Dates: start: 20100305
  3. MIRAPEX [Concomitant]
  4. KLONOPIN [Concomitant]
  5. PREVACID [Concomitant]
  6. FLEXERIL [Concomitant]
  7. CHANTIX [Concomitant]

REACTIONS (1)
  - ANAPHYLACTIC REACTION [None]
